FAERS Safety Report 5247171-5 (Version None)
Quarter: 2007Q1

REPORT INFORMATION
  Report Type: 
  Country: None (occurrence: None)
  Receive Date: 20070221
  Receipt Date: 20070213
  Transmission Date: 20070707
  Serious: Yes (Hospitalization)
  Sender: FDA-Public Use
  Company Number: 231162K07USA

PATIENT
  Age: 40 Year
  Sex: Male

DRUGS (3)
  1. REBIF [Suspect]
     Indication: MULTIPLE SCLEROSIS
     Dosage: 44 MCG, 3 IN 1 WEEKS, SUBCUTANEOUS
     Route: 058
     Dates: start: 20060814
  2. ALAVERT [Concomitant]
  3. ASPIRIN [Concomitant]

REACTIONS (2)
  - GASTROINTESTINAL DISORDER [None]
  - INFLUENZA [None]
